FAERS Safety Report 7933274-0 (Version None)
Quarter: 2011Q4

REPORT INFORMATION
  Report Type: 
  Country: None (occurrence: None)
  Receive Date: 20111122
  Receipt Date: 20111117
  Transmission Date: 20120403
  Serious: Yes (Hospitalization)
  Sender: FDA-Public Use
  Company Number: JP-SANOFI-AVENTIS-2011SA064271

PATIENT
  Age: 77 Year
  Sex: Male
  Weight: 70.1 kg

DRUGS (6)
  1. ENOXAPARIN SODIUM [Suspect]
     Route: 058
     Dates: start: 20110617, end: 20110627
  2. ALL OTHER THERAPEUTIC PRODUCTS [Concomitant]
     Route: 048
  3. LEVOFLOXACIN [Concomitant]
     Route: 048
  4. CELECOXIB [Concomitant]
     Route: 048
  5. TRAMADOL HCL [Concomitant]
     Route: 048
  6. RHYTHMY [Concomitant]
     Route: 048

REACTIONS (1)
  - ANAEMIA [None]
